FAERS Safety Report 14979181 (Version 2)
Quarter: 2018Q2

REPORT INFORMATION
  Report Type: Report from Study
  Country: IL (occurrence: IL)
  Receive Date: 20180606
  Receipt Date: 20180619
  Transmission Date: 20180711
  Serious: Yes (Other)
  Sender: FDA-Public Use
  Company Number: IL-IPSEN BIOPHARMACEUTICALS, INC.-2018-07886

PATIENT
  Age: 56 Year
  Sex: Male

DRUGS (3)
  1. AFINITOR [Concomitant]
     Active Substance: EVEROLIMUS
  2. SOMATULINE AUTOGEL 120MG [Suspect]
     Active Substance: LANREOTIDE ACETATE
     Indication: NEUROENDOCRINE TUMOUR
     Dosage: 120 MG
     Route: 065
     Dates: start: 20110816
  3. RECLAST [Concomitant]
     Active Substance: ZOLEDRONIC ACID
     Indication: NEUROENDOCRINE CARCINOMA METASTATIC

REACTIONS (16)
  - Bladder disorder [Unknown]
  - Spinal fusion surgery [Unknown]
  - Atelectasis [Unknown]
  - Tumour compression [Unknown]
  - Cholecystitis [Recovered/Resolved]
  - Peripheral swelling [Unknown]
  - Pelvic mass [Unknown]
  - Spinal column stenosis [Unknown]
  - Lymphoedema [Unknown]
  - Prostatic disorder [Unknown]
  - Hepatic mass [Unknown]
  - Hydronephrosis [Unknown]
  - Ureteric compression [Unknown]
  - Renal impairment [Unknown]
  - Cholelithiasis [Recovered/Resolved]
  - Back pain [Unknown]

NARRATIVE: CASE EVENT DATE: 201805
